FAERS Safety Report 9735791 (Version 1)
Quarter: 2013Q4

REPORT INFORMATION
  Report Type: Spontaneous
  Country: US (occurrence: US)
  Receive Date: 20131206
  Receipt Date: 20131206
  Transmission Date: 20140711
  Serious: No
  Sender: FDA-Public Use
  Company Number: US-GILEAD-2009-0023169

PATIENT
  Sex: Female

DRUGS (16)
  1. LETAIRIS [Suspect]
     Indication: PULMONARY ARTERIAL HYPERTENSION
     Route: 048
     Dates: start: 20090530
  2. LEVAQUIN [Concomitant]
  3. IMURAN [Concomitant]
  4. FOLIC ACID [Concomitant]
  5. DYAZIDE [Concomitant]
  6. PLAQUENIL [Concomitant]
  7. PREDNISONE [Concomitant]
  8. AMLODIPINE BESYLATE [Concomitant]
  9. REVATIO [Concomitant]
  10. CITRUCEL [Concomitant]
  11. NADOLOL [Concomitant]
  12. KLOR-CON [Concomitant]
  13. LEVOTHYROXINE [Concomitant]
  14. KEPPRA [Concomitant]
  15. COMPLETE MULTIVITAMIN [Concomitant]
  16. VITAMIN C [Concomitant]

REACTIONS (2)
  - Pain in extremity [Unknown]
  - Local swelling [Unknown]
